FAERS Safety Report 7301949-2 (Version None)
Quarter: 2011Q1

REPORT INFORMATION
  Report Type: 
  Country: None (occurrence: None)
  Receive Date: 20110218
  Receipt Date: 20110208
  Transmission Date: 20110831
  Serious: Yes (Other)
  Sender: FDA-Public Use
  Company Number: US-ROCHE-758868

PATIENT
  Age: 50 Year
  Sex: Male
  Weight: 86.2 kg

DRUGS (9)
  1. DIAZEPAM [Suspect]
     Route: 065
  2. DILANTIN [Suspect]
     Route: 048
  3. NEURONTIN [Suspect]
     Route: 048
  4. ZARONTIN [Suspect]
     Route: 065
  5. DILANTIN [Suspect]
     Indication: EPILEPSY
     Dosage: FORM: HARD CAPSULE
     Route: 048
  6. PAXIL [Suspect]
     Route: 065
  7. DEPAKOTE [Suspect]
     Indication: BIPOLAR DISORDER
     Dosage: OTHER INDICATION: LEGS AND THE HEAD THAT TURNED BLUE
     Route: 048
     Dates: start: 20110110
  8. ULTRAM [Suspect]
     Dosage: OTHER INDICATION: SEIZURES
     Route: 048
     Dates: start: 20110115
  9. PHENOBARBITAL TAB [Suspect]
     Indication: EPILEPSY
     Route: 048
     Dates: start: 19670101

REACTIONS (9)
  - HEAD INJURY [None]
  - BRAIN NEOPLASM [None]
  - INTRACRANIAL PRESSURE INCREASED [None]
  - CEREBRAL CYST [None]
  - SKIN DISCOLOURATION [None]
  - DRUG DEPENDENCE [None]
  - BIPOLAR I DISORDER [None]
  - CONVULSION [None]
  - PANIC ATTACK [None]
